APPROVED DRUG PRODUCT: XERAVA
Active Ingredient: ERAVACYCLINE DIHYDROCHLORIDE
Strength: EQ 50MG BASE/VIAL
Dosage Form/Route: POWDER;INTRAVENOUS
Application: N211109 | Product #001
Applicant: TETRAPHASE PHARMACEUTICALS INC
Approved: Aug 27, 2018 | RLD: Yes | RS: Yes | Type: RX

PATENTS:
Patent 8796245 | Expires: Aug 7, 2029
Patent 11578044 | Expires: Oct 19, 2037
Patent 10961190 | Expires: Oct 19, 2037
Patent 8906887 | Expires: Dec 28, 2030

EXCLUSIVITY:
Code: NCE | Date: Aug 27, 2023
Code: GAIN | Date: Aug 27, 2028